FAERS Safety Report 19799000 (Version 1)
Quarter: 2021Q3

REPORT INFORMATION
  Report Type: Spontaneous
  Country: US (occurrence: US)
  Receive Date: 20210907
  Receipt Date: 20210907
  Transmission Date: 20211014
  Serious: Yes (Hospitalization)
  Sender: FDA-Public Use
  Company Number: None

PATIENT

DRUGS (2)
  1. FENTANYL TRANSDERMAL SYSTEM [Suspect]
     Active Substance: FENTANYL
     Indication: SPINAL PAIN
     Dosage: ?          QUANTITY:1 PATCH(ES);OTHER FREQUENCY:1PATCH EVERY 48 HR;?
     Route: 062
     Dates: start: 20210819, end: 20210906
  2. FENTANYL TRANSDERMAL SYSTEM [Suspect]
     Active Substance: FENTANYL
     Indication: ARTHRALGIA
     Dosage: ?          QUANTITY:1 PATCH(ES);OTHER FREQUENCY:1PATCH EVERY 48 HR;?
     Route: 062
     Dates: start: 20210819, end: 20210906

REACTIONS (6)
  - Product quality issue [None]
  - Pain in extremity [None]
  - Rash erythematous [None]
  - Muscle spasms [None]
  - Myalgia [None]
  - Illness [None]

NARRATIVE: CASE EVENT DATE: 20210829
